FAERS Safety Report 19613923 (Version 1)
Quarter: 2021Q3

REPORT INFORMATION
  Report Type: Spontaneous
  Country: US (occurrence: US)
  Receive Date: 20210726
  Receipt Date: 20210726
  Transmission Date: 20211014
  Serious: No
  Sender: FDA-Public Use
  Company Number: None

PATIENT
  Age: 31 Year
  Sex: Male

DRUGS (2)
  1. 2% ISOPROPYL ALCHOHOL 70% 3ML) [Suspect]
     Active Substance: ISOPROPYL ALCOHOL
     Indication: ANTIBIOTIC PROPHYLAXIS
  2. CHLORHEXIDINE GLUCONATE/ISPROPYL ALCOHOL (CHLOREHEXIDINE GLUCONATE [Suspect]
     Active Substance: CHLORHEXIDINE GLUCONATE\ISOPROPYL ALCOHOL
     Indication: ANTIBIOTIC PROPHYLAXIS
     Dates: start: 20210408, end: 20210408

REACTIONS (3)
  - Rash [None]
  - Urticaria [None]
  - Pruritus [None]

NARRATIVE: CASE EVENT DATE: 20210413
